FAERS Safety Report 9092711 (Version 1)
Quarter: 2013Q1

REPORT INFORMATION
  Report Type: Spontaneous
  Country: PT (occurrence: PT)
  Receive Date: 20130131
  Receipt Date: 20130131
  Transmission Date: 20140127
  Serious: Yes (Other)
  Sender: FDA-Public Use
  Company Number: PT-009507513-1301PRT013043

PATIENT
  Age: 72 Year
  Sex: Male

DRUGS (3)
  1. MOMETASONE [Suspect]
     Indication: RHINITIS ALLERGIC
     Dosage: UNK
     Route: 045
  2. SYMBICORT [Suspect]
     Indication: CHRONIC OBSTRUCTIVE PULMONARY DISEASE
     Dosage: UNK
  3. SYMBICORT [Suspect]
     Indication: RHINITIS ALLERGIC

REACTIONS (3)
  - Hypertensive crisis [Recovered/Resolved]
  - Tachycardia [Recovered/Resolved]
  - Insomnia [Recovered/Resolved]
